FAERS Safety Report 6126973-7 (Version None)
Quarter: 2009Q1

REPORT INFORMATION
  Report Type: 
  Country: None (occurrence: None)
  Receive Date: 20090320
  Receipt Date: 20090309
  Transmission Date: 20090719
  Serious: Yes (Life-Threatening)
  Sender: FDA-Public Use
  Company Number: DE-TEVA-187773ISR

PATIENT
  Age: 75 Year
  Sex: Male
  Weight: 86 kg

DRUGS (5)
  1. SIMVASTATIN [Interacting]
     Indication: HYPERLIPIDAEMIA
     Route: 048
     Dates: start: 20080501
  2. PHENPROCOUMON [Suspect]
     Indication: THROMBOSIS PROPHYLAXIS
     Route: 048
     Dates: start: 20080501, end: 20080810
  3. ENOXAPARIN SODIUM [Interacting]
     Indication: THROMBOSIS PROPHYLAXIS
     Route: 058
     Dates: start: 20080601
  4. CLOPIDOGREL SULFATE [Interacting]
     Indication: CORONARY ARTERIAL STENT INSERTION
     Route: 048
     Dates: start: 20080501
  5. OMEPRAZOLE [Interacting]
     Indication: PROPHYLAXIS AGAINST GASTROINTESTINAL ULCER
     Route: 048
     Dates: start: 20080501, end: 20080810

REACTIONS (1)
  - GASTROINTESTINAL HAEMORRHAGE [None]
